FAERS Safety Report 13496027 (Version 2)
Quarter: 2018Q1

REPORT INFORMATION
  Report Type: Spontaneous
  Country: FR (occurrence: FR)
  Receive Date: 20170428
  Receipt Date: 20180118
  Transmission Date: 20180508
  Serious: Yes (Hospitalization, Other)
  Sender: FDA-Public Use
  Company Number: FR-GLAXOSMITHKLINE-FR2017GSK058327

PATIENT
  Age: 73 Year
  Sex: Male
  Weight: 54 kg

DRUGS (11)
  1. AUGMENTIN [Suspect]
     Active Substance: AMOXICILLIN\CLAVULANATE POTASSIUM
     Indication: PYREXIA
     Dosage: 1 G, TID
     Route: 048
     Dates: start: 20170130, end: 20170321
  2. GEMCITABINE [Suspect]
     Active Substance: GEMCITABINE\GEMCITABINE HYDROCHLORIDE
     Indication: PERIPHERAL T-CELL LYMPHOMA UNSPECIFIED RECURRENT
     Dosage: 1700 MG, CYC
     Route: 042
     Dates: start: 20170301
  3. VALACICLOVIR [Suspect]
     Active Substance: VALACYCLOVIR HYDROCHLORIDE
     Indication: OPPORTUNISTIC INFECTION PROPHYLAXIS
     Dosage: 500 MG, 1D
     Route: 048
     Dates: start: 20170131, end: 20170321
  4. SPECIAFOLDINE [Suspect]
     Active Substance: FOLIC ACID
     Indication: PRODUCT USED FOR UNKNOWN INDICATION
     Dosage: 5 MG, 1D
     Route: 048
     Dates: start: 20170131, end: 20170321
  5. PERMIXON [Concomitant]
     Active Substance: HERBALS\SAW PALMETTO
     Dosage: 160 MG, BID
     Route: 048
     Dates: start: 2015, end: 20170321
  6. BACTRIM [Suspect]
     Active Substance: SULFAMETHOXAZOLE\TRIMETHOPRIM
     Indication: OPPORTUNISTIC INFECTION PROPHYLAXIS
     Dosage: 1 DF, Z
     Route: 048
     Dates: start: 20170201, end: 20170321
  7. XATRAL LP [Suspect]
     Active Substance: ALFUZOSIN
     Indication: PRODUCT USED FOR UNKNOWN INDICATION
     Dosage: 10 MG, 1D
     Route: 048
     Dates: start: 201701, end: 20170321
  8. OXALIPLATINE [Suspect]
     Active Substance: OXALIPLATIN
     Indication: PERIPHERAL T-CELL LYMPHOMA UNSPECIFIED RECURRENT
     Dosage: 180 MG, CYC
     Route: 042
     Dates: start: 20170301
  9. PRAXILENE [Concomitant]
     Active Substance: NAFRONYL
     Dosage: 200 MG, BID
     Route: 048
     Dates: start: 2017, end: 20170321
  10. SERETIDE [Concomitant]
     Active Substance: FLUTICASONE PROPIONATE\SALMETEROL XINAFOATE
     Dosage: 1 DF, BID
     Route: 055
     Dates: start: 2015
  11. COVERSYL [Concomitant]
     Active Substance: PERINDOPRIL
     Dosage: 2.5 MG, 1D
     Route: 048
     Dates: start: 201609, end: 20170321

REACTIONS (1)
  - Dermatitis exfoliative generalised [Recovering/Resolving]

NARRATIVE: CASE EVENT DATE: 20170310
